FAERS Safety Report 16690715 (Version 1)
Quarter: 2019Q3

REPORT INFORMATION
  Report Type: Spontaneous
  Country: IT (occurrence: IT)
  Receive Date: 20190811
  Receipt Date: 20190811
  Transmission Date: 20191004
  Serious: Yes (Other)
  Sender: FDA-Public Use
  Company Number: PHHY2019IT182642

PATIENT
  Age: 52 Year
  Sex: Female

DRUGS (1)
  1. GILENYA [Suspect]
     Active Substance: FINGOLIMOD HYDROCHLORIDE
     Indication: MULTIPLE SCLEROSIS
     Dosage: UNK
     Route: 048

REACTIONS (4)
  - Intraductal proliferative breast lesion [Recovered/Resolved]
  - Precancerous cells present [Recovered/Resolved]
  - Hyperplasia [Recovered/Resolved]
  - Breast injury [Recovered/Resolved]

NARRATIVE: CASE EVENT DATE: 20181030
